FAERS Safety Report 5855706-4 (Version None)
Quarter: 2008Q3

REPORT INFORMATION
  Report Type: 
  Country: None (occurrence: None)
  Receive Date: 20080825
  Receipt Date: 20080812
  Transmission Date: 20090109
  Serious: Yes (Death, Other)
  Sender: FDA-Public Use
  Company Number: GB-RANBAXY-2008RR-14956

PATIENT

DRUGS (4)
  1. AMITRIPTYLINE HCL [Suspect]
     Indication: DEPRESSION
     Route: 048
  2. CODEINE SUL TAB [Suspect]
  3. MORPHINE [Suspect]
  4. NORTRIPTYLINE HCL [Suspect]

REACTIONS (5)
  - DEATH [None]
  - DRUG ABUSE [None]
  - DRUG INTERACTION [None]
  - DRUG TOXICITY [None]
  - INTENTIONAL DRUG MISUSE [None]
